FAERS Safety Report 21165593 (Version 1)
Quarter: 2022Q3

REPORT INFORMATION
  Report Type: Spontaneous
  Country: US (occurrence: US)
  Receive Date: 20220803
  Receipt Date: 20220803
  Transmission Date: 20221027
  Serious: No
  Sender: FDA-Public Use
  Company Number: US-ORGANON-O2208USA000034

PATIENT
  Sex: Female

DRUGS (12)
  1. FOLLISTIM AQ [Suspect]
     Active Substance: FOLLITROPIN
     Indication: Infertility female
     Dosage: 450 UNITS DAILY
     Route: 058
     Dates: start: 20220526
  2. DOXYCYCLINE HYCLATE [Concomitant]
     Active Substance: DOXYCYCLINE HYCLATE
     Dosage: UNK
  3. FOLLISTIM AQ [Concomitant]
     Active Substance: FOLLITROPIN
     Dosage: (900 UNITS)
  4. GANIRELIX ACETATE [Concomitant]
     Active Substance: GANIRELIX ACETATE
     Dosage: UNK
  5. GANIRELIX ACETATE [Concomitant]
     Active Substance: GANIRELIX ACETATE
     Dosage: (FORMULATION WAS REPORTED AS SOLUTION, STRENGTH WAS REPORTED AS 250/0.5 UNITS NOT REPORTED)
  6. LEUPROLIDE ACETATE [Concomitant]
     Active Substance: LEUPROLIDE ACETATE
     Dosage: UNK
  7. LEUPROLIDE ACETATE [Concomitant]
     Active Substance: LEUPROLIDE ACETATE
     Dosage: UNK
  8. LEVORA-28 [Concomitant]
     Dosage: STRENGTH GIVEN AS 0.15/30 (UNITS NOT REPORTED)
     Route: 048
  9. LEVOTHYROXINE [Concomitant]
     Active Substance: LEVOTHYROXINE
     Dosage: UNK
     Route: 048
  10. PREGNYL [Concomitant]
     Active Substance: CHORIOGONADOTROPIN ALFA
     Dosage: UNK
  11. BENZYL ALCOHOL [Concomitant]
     Active Substance: BENZYL ALCOHOL
     Dosage: UNK
  12. MINERALS\VITAMINS [Concomitant]
     Active Substance: MINERALS\VITAMINS
     Dosage: UNK
     Route: 048

REACTIONS (1)
  - Abdominal distension [Unknown]
